FAERS Safety Report 5102878-5 (Version None)
Quarter: 2006Q3

REPORT INFORMATION
  Report Type: 
  Country: None (occurrence: None)
  Receive Date: 20060908
  Receipt Date: 20060828
  Transmission Date: 20061208
  Serious: Yes (Death)
  Sender: FDA-Public Use
  Company Number: GXBR2006US01694

PATIENT
  Age: 11 Year
  Sex: Male

DRUGS (1)
  1. AMPHETAMINE COMBINATION TABLETS (NGX)(AMFETAMINE, DEXAMFETAMINE) TABLE [Suspect]
     Indication: ATTENTION DEFICIT/HYPERACTIVITY DISORDER
     Dates: start: 20040308

REACTIONS (1)
  - VENTRICULAR ARRHYTHMIA [None]
